FAERS Safety Report 5856716-3 (Version None)
Quarter: 2008Q3

REPORT INFORMATION
  Report Type: 
  Country: None (occurrence: None)
  Receive Date: 20080825
  Receipt Date: 20080815
  Transmission Date: 20090109
  Serious: Yes (Hospitalization, Other)
  Sender: FDA-Public Use
  Company Number: FI-ABBOTT-08P-055-0451302-00

PATIENT
  Age: 32 Year
  Sex: Female

DRUGS (2)
  1. HUMIRA [Suspect]
     Indication: CROHN'S DISEASE
     Route: 058
     Dates: start: 20070824, end: 20080420
  2. HUMIRA [Suspect]
     Dosage: FIRST DOSE ONLY

REACTIONS (2)
  - DIPLOPIA [None]
  - MULTIPLE SCLEROSIS [None]
